FAERS Safety Report 24759357 (Version 1)
Quarter: 2024Q4

REPORT INFORMATION
  Report Type: Spontaneous
  Country: US (occurrence: None)
  Receive Date: 20241219
  Receipt Date: 20241219
  Transmission Date: 20250115
  Serious: No
  Sender: Public
  Company Number: None

PATIENT
  Age: 68 Year
  Sex: Female
  Weight: 77.4 kg

DRUGS (15)
  1. SEMAGLUTIDE [Suspect]
     Active Substance: SEMAGLUTIDE
     Indication: Obesity
     Dosage: OTHER FREQUENCY : WEEKLY;?
     Route: 061
  2. XIIDRA [Concomitant]
     Active Substance: LIFITEGRAST
  3. NEXIUM [Concomitant]
     Active Substance: ESOMEPRAZOLE MAGNESIUM
  4. ATACAND [Concomitant]
     Active Substance: CANDESARTAN CILEXETIL
  5. NADOLOL [Concomitant]
     Active Substance: NADOLOL
  6. CELEBREX [Concomitant]
     Active Substance: CELECOXIB
  7. CYMBALTA [Concomitant]
     Active Substance: DULOXETINE HYDROCHLORIDE
  8. PLAQUENIL [Concomitant]
     Active Substance: HYDROXYCHLOROQUINE SULFATE
  9. LIPITOR [Concomitant]
     Active Substance: ATORVASTATIN CALCIUM
  10. ZETIA [Concomitant]
     Active Substance: EZETIMIBE
  11. MULTI [Concomitant]
  12. VITAMIN D [Concomitant]
     Active Substance: VITAMIN D NOS
  13. ALLEGRA [Concomitant]
     Active Substance: FEXOFENADINE HYDROCHLORIDE
  14. FISH OIL [Concomitant]
     Active Substance: FISH OIL
  15. ASPIRIN [Concomitant]
     Active Substance: ASPIRIN

REACTIONS (5)
  - Skin burning sensation [None]
  - Pain in extremity [None]
  - Spinal disorder [None]
  - Intentional dose omission [None]
  - Gastrointestinal disorder [None]

NARRATIVE: CASE EVENT DATE: 20240401
